FAERS Safety Report 9491282 (Version 2)
Quarter: 2013Q3

REPORT INFORMATION
  Report Type: Spontaneous
  Country: JP (occurrence: JP)
  Receive Date: 20130830
  Receipt Date: 20130830
  Transmission Date: 20140515
  Serious: Yes (Other)
  Sender: FDA-Public Use
  Company Number: JP-PFIZER INC-2013126122

PATIENT
  Age: 1 Year
  Sex: Female
  Weight: 10.3 kg

DRUGS (13)
  1. METHYLPREDNISOLONE SODIUM SUCCINATE [Suspect]
     Indication: DERMATOMYOSITIS
     Dosage: 300 MG, 1X/DAY
     Route: 041
     Dates: start: 20021226, end: 20021226
  2. METHYLPREDNISOLONE SODIUM SUCCINATE [Suspect]
     Indication: INTERSTITIAL LUNG DISEASE
     Dosage: 200 MG, 1X/DAY
     Route: 041
     Dates: start: 20030123, end: 20030125
  3. METHYLPREDNISOLONE SODIUM SUCCINATE [Suspect]
     Dosage: 150 MG, 1X/DAY
     Route: 041
     Dates: start: 20030205, end: 20030207
  4. METHYLPREDNISOLONE SODIUM SUCCINATE [Suspect]
     Dosage: 150 MG, 1X/DAY
     Route: 041
     Dates: start: 20030218, end: 20030220
  5. CEFMETAZON [Concomitant]
     Indication: DERMATOMYOSITIS
     Dosage: 400 MG, 3X/DAY
     Route: 042
     Dates: start: 20021218, end: 20021223
  6. CEFMETAZON [Concomitant]
     Indication: PNEUMONIA BACTERIAL
     Dosage: 400 MG, 3X/DAY
     Route: 042
     Dates: start: 20030105, end: 20030109
  7. PREDNISOLONE [Concomitant]
     Indication: DERMATOMYOSITIS
     Dosage: 1 MG/KG/DAY
     Route: 048
  8. PREDNISOLONE [Concomitant]
     Dosage: 0.8 MG/KG/DAY
     Route: 048
  9. PREDNISOLONE [Concomitant]
     Dosage: 0.6 MG/KG/DAY
     Route: 048
  10. PREDNISOLONE [Concomitant]
     Dosage: 0.5 MG/KG/DAY
     Route: 048
  11. KENKETSU VENILON [Concomitant]
     Indication: DERMATOMYOSITIS
     Dosage: UNK
  12. KENKETSU VENILON [Concomitant]
     Indication: PNEUMONIA
  13. TIENAM [Concomitant]
     Indication: PNEUMONIA BACTERIAL
     Dosage: 200 MG, 3X/DAY
     Route: 042
     Dates: start: 20021227, end: 20030105

REACTIONS (1)
  - Oxygen saturation decreased [Recovering/Resolving]
